FAERS Safety Report 4820394-2 (Version None)
Quarter: 2005Q4

REPORT INFORMATION
  Report Type: 
  Country: None (occurrence: None)
  Receive Date: 20051104
  Receipt Date: 20051026
  Transmission Date: 20060501
  Serious: Yes (Other)
  Sender: FDA-Public Use
  Company Number: 2005AP05606

PATIENT
  Age: 71 Year
  Sex: Male

DRUGS (4)
  1. XYLOCAINE [Suspect]
     Indication: EPIDURAL ANAESTHESIA
     Dosage: 15 ML OF 1% LIDOCAINE
     Route: 008
  2. OXYGEN [Concomitant]
     Indication: ANAESTHESIA
     Route: 055
  3. NITROUS OXIDE W/ OXYGEN [Concomitant]
     Indication: ANAESTHESIA
     Route: 055
  4. SEVOFRANE [Concomitant]
     Indication: ANAESTHESIA
     Route: 055

REACTIONS (2)
  - DYSPNOEA [None]
  - OXYGEN SATURATION DECREASED [None]
